FAERS Safety Report 25599563 (Version 1)
Quarter: 2025Q3

REPORT INFORMATION
  Report Type: Spontaneous
  Country: US (occurrence: US)
  Receive Date: 20250724
  Receipt Date: 20250724
  Transmission Date: 20251021
  Serious: No
  Sender: ROCHE
  Company Number: US-ROCHE-10000336870

PATIENT
  Age: 20 Year
  Sex: Male

DRUGS (7)
  1. LUXTURNA [Suspect]
     Active Substance: VORETIGENE NEPARVOVEC-RZYL
     Indication: RPE65 gene mutation
     Route: 050
     Dates: start: 20180523, end: 20180523
  2. LUXTURNA [Suspect]
     Active Substance: VORETIGENE NEPARVOVEC-RZYL
     Route: 050
     Dates: start: 20180530, end: 20180530
  3. CLINDAMYCIN [Concomitant]
     Active Substance: CLINDAMYCIN
  4. ZOLOFT(SERTRALINE HYDROCHLORIDE) [Concomitant]
  5. SINGULAIR(MONTELUKAST SODIUM) [Concomitant]
  6. LORATADINE [Concomitant]
     Active Substance: LORATADINE
  7. PSYLLIUM (PLANTAGO OVATA) [Concomitant]

REACTIONS (2)
  - Visual acuity reduced [Not Recovered/Not Resolved]
  - Night blindness [Not Recovered/Not Resolved]

NARRATIVE: CASE EVENT DATE: 20211129
